FAERS Safety Report 5712418-5 (Version None)
Quarter: 2008Q2

REPORT INFORMATION
  Report Type: 
  Country: None (occurrence: None)
  Receive Date: 20080422
  Receipt Date: 20080411
  Transmission Date: 20081010
  Serious: Yes (Other)
  Sender: FDA-Public Use
  Company Number: PHBS2006JP17007

PATIENT
  Age: 70 Year
  Sex: Male
  Weight: 49 kg

DRUGS (13)
  1. AREDIA [Suspect]
     Indication: HYPERCALCAEMIA
     Dosage: 30 MG, EVERY 3 OR 4 WEEKS
     Route: 042
     Dates: start: 20040315, end: 20060629
  2. ACINON [Concomitant]
     Indication: HYPERTENSION
     Dosage: 150 MG/D
     Route: 048
     Dates: start: 20040506
  3. NORVASC [Concomitant]
     Indication: HYPERTENSION
     Dosage: 5 MG/D
     Route: 048
     Dates: start: 20040629, end: 20061024
  4. FLOMOX [Concomitant]
     Indication: PROPHYLAXIS
     Dosage: 300 MG/D
     Route: 048
     Dates: start: 20060613, end: 20060615
  5. ONCOVIN [Concomitant]
     Indication: CHEMOTHERAPY
     Dosage: 0.4 MG, UNK
     Route: 042
     Dates: start: 20060620, end: 20060623
  6. ADRIACIN [Concomitant]
     Indication: CHEMOTHERAPY
     Dosage: 13 MG, UNK
     Route: 042
     Dates: start: 20060620, end: 20060623
  7. DECADRON [Concomitant]
     Indication: CHEMOTHERAPY
     Dosage: 40 MG, UNK
     Route: 042
     Dates: start: 20060620, end: 20060707
  8. MAGLAX [Concomitant]
     Indication: CONSTIPATION
     Dosage: 1980 MG/D
     Route: 048
     Dates: start: 20060620
  9. MELPHALAN [Concomitant]
     Route: 065
     Dates: start: 20040301, end: 20060401
  10. PREDNISOLONE [Concomitant]
     Route: 065
     Dates: start: 20040301, end: 20060401
  11. RADIATION THERAPY [Concomitant]
     Dosage: 30 GY/10 FR/2.5 WEEKS
     Route: 065
     Dates: start: 20040301
  12. VINCRISTINE + ADRIAMYCIN + DEXAMETHASONE [Concomitant]
     Dosage: UNK, UNK
     Route: 065
     Dates: start: 20060614
  13. HUMULIN R [Concomitant]
     Indication: BLOOD GLUCOSE FLUCTUATION
     Dosage: 2-12 IU/D
     Route: 058
     Dates: start: 20060621, end: 20060710

REACTIONS (26)
  - ANAEMIA [None]
  - BACTERIAL INFECTION [None]
  - BLOOD ALKALINE PHOSPHATASE INCREASED [None]
  - BONE DISORDER [None]
  - COMPUTERISED TOMOGRAM ABNORMAL [None]
  - DEBRIDEMENT [None]
  - DENTAL CARE [None]
  - GINGIVITIS [None]
  - HAEMORRHAGE [None]
  - IMPAIRED HEALING [None]
  - INSOMNIA [None]
  - MULTIPLE MYELOMA [None]
  - NAUSEA [None]
  - NEUTROPENIA [None]
  - OSTEONECROSIS [None]
  - PAIN [None]
  - PRIMARY SEQUESTRUM [None]
  - RENAL DISORDER [None]
  - SEQUESTRECTOMY [None]
  - SWELLING [None]
  - THERAPEUTIC PROCEDURE [None]
  - TOOTH EXTRACTION [None]
  - TOOTHACHE [None]
  - WOUND CLOSURE [None]
  - WOUND SECRETION [None]
  - X-RAY ABNORMAL [None]
